FAERS Safety Report 18601873 (Version 4)
Quarter: 2021Q3

REPORT INFORMATION
  Report Type: Report from Study
  Country: AR (occurrence: AR)
  Receive Date: 20201210
  Receipt Date: 20210907
  Transmission Date: 20211014
  Serious: Yes (Hospitalization, Other)
  Sender: FDA-Public Use
  Company Number: AR-TAKEDA-2020TUS056309

PATIENT
  Age: 22 Year
  Sex: Male

DRUGS (4)
  1. IDURSULFASE [Suspect]
     Active Substance: IDURSULFASE
     Dosage: 0.5 MILLIGRAM/KILOGRAM, Q2WEEKS
     Route: 042
     Dates: start: 20130517
  2. IDURSULFASE [Suspect]
     Active Substance: IDURSULFASE
     Dosage: 2 MILLIGRAM PER MILLILITRE
     Route: 042
     Dates: start: 20091014
  3. IDURSULFASE [Suspect]
     Active Substance: IDURSULFASE
     Dosage: 3 DOSAGE FORM (0.5 MG/KG BODY WEIGHT), 1/WEEK
     Route: 050
     Dates: start: 20130517
  4. IDURSULFASE [Suspect]
     Active Substance: IDURSULFASE
     Indication: PRODUCT USED FOR UNKNOWN INDICATION
     Dosage: 6 MILLIGRAM, 1/WEEK
     Route: 042

REACTIONS (10)
  - Pneumonia aspiration [Unknown]
  - Feeling abnormal [Unknown]
  - Pyrexia [Recovering/Resolving]
  - Urinary tract infection [Recovering/Resolving]
  - Pulmonary congestion [Unknown]
  - Oxygen saturation abnormal [Unknown]
  - Constipation [Unknown]
  - Increased upper airway secretion [Unknown]
  - Body temperature increased [Unknown]
  - Irritability [Recovering/Resolving]

NARRATIVE: CASE EVENT DATE: 20201124
